FAERS Safety Report 9308131 (Version 2)
Quarter: 2013Q2

REPORT INFORMATION
  Report Type: Spontaneous
  Country: FR (occurrence: FR)
  Receive Date: 20130524
  Receipt Date: 20130624
  Transmission Date: 20140414
  Serious: Yes (Hospitalization)
  Sender: FDA-Public Use
  Company Number: FR-SANOFI-AVENTIS-2013SA050653

PATIENT
  Age: 71 Year
  Sex: Female

DRUGS (4)
  1. PLAVIX [Suspect]
     Indication: TRANSIENT ISCHAEMIC ATTACK
     Route: 048
     Dates: end: 20130426
  2. THERALENE [Suspect]
     Indication: SLEEP DISORDER
     Dosage: DOSE: 40 GOUTS DAILY
     Route: 048
     Dates: end: 20130426
  3. LAROXYL [Suspect]
     Indication: NEUROPATHY PERIPHERAL
     Route: 048
     Dates: end: 20130426
  4. LEVOTHYROX [Concomitant]
     Indication: HYPOTHYROIDISM
     Route: 048
     Dates: end: 20130426

REACTIONS (2)
  - Febrile bone marrow aplasia [Recovered/Resolved]
  - Agranulocytosis [Recovered/Resolved]
